FAERS Safety Report 6107441-5 (Version None)
Quarter: 2009Q1

REPORT INFORMATION
  Report Type: 
  Country: None (occurrence: None)
  Receive Date: 20090309
  Receipt Date: 20090305
  Transmission Date: 20090719
  Serious: Yes (Death, Hospitalization, Other)
  Sender: FDA-Public Use
  Company Number: PHHY2009BR07892

PATIENT
  Age: 82 Year
  Sex: Male

DRUGS (4)
  1. EXELON [Suspect]
     Indication: DEMENTIA ALZHEIMER'S TYPE
     Dosage: UNK
     Route: 048
  2. EXELON [Suspect]
  3. DAFLON [Concomitant]
     Indication: CARDIOVASCULAR INSUFFICIENCY
     Dosage: UNK
  4. AKINETON [Concomitant]
     Indication: PARKINSON'S DISEASE
     Dosage: UNK

REACTIONS (10)
  - ABASIA [None]
  - APHASIA [None]
  - ASPIRATION [None]
  - BEDRIDDEN [None]
  - BRADYCARDIA [None]
  - CARDIAC DISORDER [None]
  - DEMENTIA ALZHEIMER'S TYPE [None]
  - EATING DISORDER [None]
  - GASTROINTESTINAL TUBE INSERTION [None]
  - URINARY TRACT INFECTION [None]
